FAERS Safety Report 5445825-9 (Version None)
Quarter: 2007Q3

REPORT INFORMATION
  Report Type: 
  Country: None (occurrence: None)
  Receive Date: 20070904
  Receipt Date: 20070820
  Transmission Date: 20080115
  Serious: Yes (Other)
  Sender: FDA-Public Use
  Company Number: 2007RR-09469

PATIENT
  Sex: Female

DRUGS (8)
  1. FLUCONAZOLE [Suspect]
  2. DESLORATADINE [Suspect]
  3. CLEMASTINE (CLEMASTINE) [Concomitant]
  4. ALLOPURINOL [Concomitant]
  5. RANITIDINE [Concomitant]
  6. LORAZEPAM [Concomitant]
  7. SPIRONOLACTONE [Concomitant]
  8. FILAGRASTIM (FILAGRASTIM) [Concomitant]

REACTIONS (4)
  - DRUG INTERACTION [None]
  - HEPATIC ENZYME INCREASED [None]
  - HEPATOTOXICITY [None]
  - INTERNATIONAL NORMALISED RATIO INCREASED [None]
